FAERS Safety Report 7048068-0 (Version None)
Quarter: 2010Q4

REPORT INFORMATION
  Report Type: 
  Country: None (occurrence: None)
  Receive Date: 20101015
  Receipt Date: 20101007
  Transmission Date: 20110411
  Serious: Yes (Other)
  Sender: FDA-Public Use
  Company Number: B0678497A

PATIENT
  Age: 74 Year
  Sex: Male

DRUGS (2)
  1. VENTOLIN [Suspect]
     Indication: ASTHMA
     Route: 055
  2. XYZAL [Concomitant]

REACTIONS (4)
  - ANXIETY [None]
  - ASPHYXIA [None]
  - PAINFUL RESPIRATION [None]
  - PRODUCT QUALITY ISSUE [None]
